FAERS Safety Report 12101284 (Version 1)
Quarter: 2016Q1

REPORT INFORMATION
  Report Type: Spontaneous
  Country: US (occurrence: US)
  Receive Date: 20160222
  Receipt Date: 20160222
  Transmission Date: 20160526
  Serious: No
  Sender: FDA-Public Use
  Company Number: US-SHIONOGI, INC-2014000349

PATIENT
  Age: 51 Year
  Sex: Female

DRUGS (13)
  1. KEFLEX [Suspect]
     Active Substance: CEPHALEXIN
     Indication: ONYCHOMYCOSIS
     Dosage: 1 TAB DAILY
     Route: 065
     Dates: start: 20140224, end: 2014
  2. OMEPRAZOLE. [Concomitant]
     Active Substance: OMEPRAZOLE
     Indication: DYSPEPSIA
     Dosage: UNK
     Route: 065
  3. SIMVASTATIN. [Concomitant]
     Active Substance: SIMVASTATIN
     Indication: BLOOD CHOLESTEROL INCREASED
     Dosage: UNK
     Route: 065
  4. KEFLEX [Suspect]
     Active Substance: CEPHALEXIN
     Indication: OFF LABEL USE
     Dosage: UNK
  5. HUMIRA [Suspect]
     Active Substance: ADALIMUMAB
     Indication: COLITIS ULCERATIVE
     Dosage: 40 MG SOLUTION FOR INJ (1-2 WEEKS)
     Route: 065
     Dates: start: 20131209
  6. APRISO [Concomitant]
     Active Substance: MESALAMINE
     Indication: COLITIS ULCERATIVE
     Dosage: 3 TABS PER DAY
     Route: 048
  7. METFORMIN [Concomitant]
     Active Substance: METFORMIN HYDROCHLORIDE
     Indication: DIABETES MELLITUS
     Dosage: 1000 MG, BID
  8. LISINOPRIL. [Concomitant]
     Active Substance: LISINOPRIL
     Indication: HYPERTENSION
     Dosage: 10 MG, QD
     Route: 048
  9. VITAMIN B12 [Concomitant]
     Active Substance: CYANOCOBALAMIN
     Indication: PARAESTHESIA
     Dosage: 1000 MG, QD
     Route: 048
  10. AMITRIPTYLINE [Concomitant]
     Active Substance: AMITRIPTYLINE
     Indication: INSOMNIA
     Dosage: UNK
     Route: 065
  11. COD LIVER OIL [Concomitant]
     Active Substance: COD LIVER OIL
     Indication: BLOOD TRIGLYCERIDES INCREASED
     Dosage: 2000 MG, QD
     Route: 048
  12. FERROUS SULFATE [Concomitant]
     Active Substance: FERROUS SULFATE\FERROUS SULFATE, DRIED
     Indication: BLOOD TRIGLYCERIDES INCREASED
     Route: 048
  13. CYMBALTA [Concomitant]
     Active Substance: DULOXETINE HYDROCHLORIDE
     Indication: PRODUCT USED FOR UNKNOWN INDICATION
     Dosage: 60 MG, QD

REACTIONS (9)
  - Nail operation [Recovered/Resolved]
  - Vulvovaginal pruritus [Unknown]
  - Onychomycosis [Unknown]
  - Vulvovaginal mycotic infection [Unknown]
  - Onychalgia [Unknown]
  - Vaginal discharge [Unknown]
  - Nasopharyngitis [Unknown]
  - Off label use [Unknown]
  - Drug ineffective for unapproved indication [Unknown]

NARRATIVE: CASE EVENT DATE: 2014
